FAERS Safety Report 14393492 (Version 1)
Quarter: 2018Q1

REPORT INFORMATION
  Report Type: Spontaneous
  Country: US (occurrence: US)
  Receive Date: 20180115
  Receipt Date: 20180115
  Transmission Date: 20180509
  Serious: Yes (Hospitalization)
  Sender: FDA-Public Use
  Company Number: None

PATIENT
  Sex: Male

DRUGS (7)
  1. CIPROFLOXACN [Concomitant]
     Active Substance: CIPROFLOXACIN
  2. ENOXAPARIN [Concomitant]
     Active Substance: ENOXAPARIN
  3. LOPERAMIDE [Concomitant]
     Active Substance: LOPERAMIDE
  4. OPIUM. [Concomitant]
     Active Substance: OPIUM
  5. METRONIDAZOL [Concomitant]
     Active Substance: METRONIDAZOLE
  6. TRAMADOL. [Concomitant]
     Active Substance: TRAMADOL
  7. STELARA [Suspect]
     Active Substance: USTEKINUMAB
     Indication: GASTROINTESTINAL DISORDER
     Dosage: ?          OTHER FREQUENCY:EVERY 8 WEEKS;?
     Route: 058
     Dates: start: 20171118

REACTIONS (1)
  - Surgery [None]
